FAERS Safety Report 8419829-8 (Version None)
Quarter: 2012Q2

REPORT INFORMATION
  Report Type: 
  Country: None (occurrence: None)
  Receive Date: 20120607
  Receipt Date: 20120530
  Transmission Date: 20120825
  Serious: Yes (Hospitalization)
  Sender: FDA-Public Use
  Company Number: PHHY2012FR047432

PATIENT
  Sex: Female

DRUGS (15)
  1. CLOZAPINE [Suspect]
     Dosage: DECREASE OF THE DOSES OF LEPONEX
  2. CLOZAPINE [Suspect]
     Dosage: 25 MG, UNK
  3. STALEVO 100 [Suspect]
     Dosage: INCREASE OF THE DOSES OF STALEVO
  4. MOVIPREP [Concomitant]
     Dosage: UNK UKN, UNK
  5. STALEVO 100 [Suspect]
     Dosage: 75 MG, UNK
  6. SINEMET [Suspect]
     Dosage: 125 MG, (25/100)
     Dates: end: 20120301
  7. CLOZAPINE [Suspect]
     Dosage: 25 MG, UNK
     Route: 048
  8. OXAZEPAM [Concomitant]
     Dosage: UNK UKN, UNK
  9. MODOPAR [Concomitant]
     Dosage: 25 MG, UNK
  10. POTASSIUM CHLORIDE [Concomitant]
     Dosage: UNK UKN, UNK
  11. CLOZAPINE [Suspect]
     Dosage: INCREASE OF LEPONEX AT OF HALF IN THE EVENING
  12. STALEVO 100 [Suspect]
     Dosage: 1 DF, (1 TABLET 5 TIMES A DAY )
     Route: 048
  13. STALEVO 100 [Suspect]
     Dosage: DECREASE OF THE DOSES OF STALEVO
  14. ACETAMINOPHEN [Concomitant]
     Dosage: UNK UKN, UNK
  15. MIRTAZAPINE [Concomitant]
     Dosage: UNK UKN, UNK

REACTIONS (10)
  - FALL [None]
  - DELIRIUM [None]
  - PARKINSONISM [None]
  - AUTONOMIC NERVOUS SYSTEM IMBALANCE [None]
  - MALAISE [None]
  - MUSCULAR WEAKNESS [None]
  - ORTHOSTATIC HYPOTENSION [None]
  - DIZZINESS [None]
  - MOTOR DYSFUNCTION [None]
  - ASTHENIA [None]
